FAERS Safety Report 8193091-6 (Version None)
Quarter: 2012Q1

REPORT INFORMATION
  Report Type: 
  Country: None (occurrence: None)
  Receive Date: 20120308
  Receipt Date: 20120308
  Transmission Date: 20120608
  Serious: No
  Sender: FDA-Public Use
  Company Number: None

PATIENT
  Sex: Male
  Weight: 81.646 kg

DRUGS (1)
  1. PLAVIX [Suspect]
     Indication: STENT PLACEMENT
     Dosage: 75 MG
     Route: 048
     Dates: start: 20091007, end: 20101007

REACTIONS (4)
  - DEAFNESS UNILATERAL [None]
  - VOMITING [None]
  - EPISTAXIS [None]
  - DIZZINESS [None]
